FAERS Safety Report 5305429-5 (Version None)
Quarter: 2007Q2

REPORT INFORMATION
  Report Type: 
  Country: None (occurrence: None)
  Receive Date: 20070416
  Receipt Date: 20070404
  Transmission Date: 20071010
  Serious: Yes (Other)
  Sender: FDA-Public Use
  Company Number: 2007US-06727

PATIENT
  Age: 39 Year
  Sex: Male

DRUGS (2)
  1. TOPIRAMATE [Suspect]
     Indication: EPILEPSY
     Dosage: 25 MG/WK, TITRATED 300MG/DAY, ORAL
     Route: 048
  2. OXCARBAZEPINE [Concomitant]

REACTIONS (1)
  - APHASIA [None]
